FAERS Safety Report 7286438-6 (Version None)
Quarter: 2011Q1

REPORT INFORMATION
  Report Type: 
  Country: None (occurrence: None)
  Receive Date: 20110127
  Receipt Date: 20110113
  Transmission Date: 20110831
  Serious: Yes (Death)
  Sender: FDA-Public Use
  Company Number: DSA_44669_2011

PATIENT
  Age: 12 Month
  Sex: Female

DRUGS (1)
  1. BUPROPION HCL [Suspect]
     Dosage: (OVERDOSE AMOUNT (UP TO 12 X 300 MG TABLETS) ORAL)
     Route: 048
     Dates: start: 20090101, end: 20090101

REACTIONS (9)
  - STATUS EPILEPTICUS [None]
  - HYPOTENSION [None]
  - ACCIDENTAL DRUG INTAKE BY CHILD [None]
  - PULMONARY OEDEMA [None]
  - BRAIN OEDEMA [None]
  - CONVULSION [None]
  - ACUTE LUNG INJURY [None]
  - BRONCHOPNEUMONIA [None]
  - ACCIDENTAL OVERDOSE [None]
